FAERS Safety Report 9482529 (Version 1)
Quarter: 2013Q3

REPORT INFORMATION
  Report Type: Spontaneous
  Country: US (occurrence: US)
  Receive Date: 20130828
  Receipt Date: 20130828
  Transmission Date: 20140515
  Serious: No
  Sender: FDA-Public Use
  Company Number: US-SANOFI-AVENTIS-2012SA088876

PATIENT
  Age: 78 Year
  Sex: Male
  Weight: 73.4 kg

DRUGS (8)
  1. ELIGARD [Suspect]
     Indication: PROSTATE CANCER
     Route: 065
     Dates: start: 201105, end: 201105
  2. ELIGARD [Suspect]
     Indication: PROSTATE CANCER
     Route: 065
     Dates: start: 201108, end: 201108
  3. ELIGARD [Suspect]
     Indication: PROSTATE CANCER
     Route: 065
     Dates: start: 201111, end: 201111
  4. ELIGARD [Suspect]
     Indication: PROSTATE CANCER
     Route: 065
     Dates: start: 201202, end: 201202
  5. ELIGARD [Suspect]
     Indication: PROSTATE CANCER
     Route: 065
     Dates: start: 201205, end: 201205
  6. ELIGARD [Suspect]
     Indication: PROSTATE CANCER
     Route: 065
     Dates: start: 201208, end: 201208
  7. ELIGARD [Suspect]
     Indication: PROSTATE CANCER
     Route: 065
     Dates: start: 201211, end: 201211
  8. UNKNOWDRUG [Concomitant]
     Route: 048

REACTIONS (3)
  - Cough [Not Recovered/Not Resolved]
  - Choking [Not Recovered/Not Resolved]
  - Hyperhidrosis [Not Recovered/Not Resolved]
